FAERS Safety Report 9156066 (Version 4)
Quarter: 2013Q4

REPORT INFORMATION
  Report Type: Spontaneous
  Country: US (occurrence: US)
  Receive Date: 20130311
  Receipt Date: 20131104
  Transmission Date: 20140711
  Serious: Yes (Hospitalization)
  Sender: FDA-Public Use
  Company Number: US-B.I. PHARMACEUTICALS,INC./RIDGEFIELD-2013-BI-05884BP

PATIENT
  Sex: Female
  Weight: 56.7 kg

DRUGS (12)
  1. PRADAXA [Suspect]
     Indication: ATRIAL FIBRILLATION
     Dosage: 300 MG
     Route: 048
     Dates: start: 20120118, end: 20120227
  2. PRADAXA [Suspect]
     Dosage: 150 MG
     Route: 048
     Dates: start: 20120227, end: 20120229
  3. PRAVASTATIN [Concomitant]
     Dosage: 40 MG
     Route: 048
  4. METHIMAZOLE [Concomitant]
     Dosage: 2.5 MG
     Route: 048
  5. DIGOXIN [Concomitant]
     Dosage: 0.0625 MG
     Route: 048
  6. AMIODARONE [Concomitant]
     Dosage: 200 MG
     Route: 048
  7. CARVEDILOL [Concomitant]
     Dosage: 25 MG
     Route: 048
  8. KLOR CON ER [Concomitant]
     Dosage: 10 MEQ
     Route: 048
  9. HYDROCHLOROTHIAZIDE [Concomitant]
     Route: 048
  10. FUROSEMIDE [Concomitant]
     Dosage: 40 MG
     Route: 048
  11. HYDRALAZINE [Concomitant]
  12. FLUTICASONE [Concomitant]

REACTIONS (4)
  - Gastrointestinal haemorrhage [Unknown]
  - Hypotension [Unknown]
  - Urinary tract infection [Unknown]
  - Dehydration [Unknown]
